FAERS Safety Report 14694280 (Version 1)
Quarter: 2018Q1

REPORT INFORMATION
  Report Type: Report from Study
  Country: IT (occurrence: IT)
  Receive Date: 20180329
  Receipt Date: 20180329
  Transmission Date: 20180509
  Serious: Yes (Other)
  Sender: FDA-Public Use
  Company Number: IT-VELOXIS PHARMACEUTICALS-2044768

PATIENT
  Age: 67 Year
  Sex: Male

DRUGS (5)
  1. ENVARSUS XR [Suspect]
     Active Substance: TACROLIMUS
     Indication: PROPHYLAXIS AGAINST TRANSPLANT REJECTION
     Route: 048
     Dates: start: 20170929, end: 20180309
  2. RANITIDINE. [Concomitant]
     Active Substance: RANITIDINE
  3. BARACLUDE [Concomitant]
     Active Substance: ENTECAVIR
  4. DELTACORTENE [Suspect]
     Active Substance: PREDNISONE
     Route: 048
  5. MYFENAX [Suspect]
     Active Substance: MYCOPHENOLATE MOFETIL
     Route: 048
     Dates: start: 20170929, end: 20180309

REACTIONS (2)
  - Lymphadenopathy [Not Recovered/Not Resolved]
  - Squamous cell carcinoma [Not Recovered/Not Resolved]

NARRATIVE: CASE EVENT DATE: 20180301
